FAERS Safety Report 9840677 (Version 2)
Quarter: 2014Q1

REPORT INFORMATION
  Report Type: Report from Study
  Country: ES (occurrence: ES)
  Receive Date: 20140124
  Receipt Date: 20140205
  Transmission Date: 20141002
  Serious: Yes (Other)
  Sender: FDA-Public Use
  Company Number: ES-MILLENNIUM PHARMACEUTICALS, INC.-2014JNJ000151

PATIENT
  Sex: 0

DRUGS (4)
  1. VELCADE [Suspect]
     Indication: PLASMA CELL MYELOMA
     Dosage: 1.40 MG, UNK
     Route: 042
     Dates: start: 20120123, end: 20120723
  2. BENDAMUSTINE [Suspect]
     Indication: PLASMA CELL MYELOMA
     Dosage: 180 MG, UNK
     Route: 042
     Dates: start: 20120123, end: 20120716
  3. PREDNISONE [Suspect]
     Indication: PLASMA CELL MYELOMA
     Dosage: 120 MG, UNK
     Route: 048
     Dates: start: 20120123, end: 20120712
  4. GRANULOCYTE COLONY-STIMULATING FACTOR NOS [Concomitant]
     Dosage: 12 MG/KG, UNK
     Dates: start: 20120630, end: 20120819

REACTIONS (1)
  - Haematopoietic stem cell mobilisation [Unknown]
